FAERS Safety Report 25432656 (Version 1)
Quarter: 2025Q2

REPORT INFORMATION
  Report Type: Spontaneous
  Country: US (occurrence: US)
  Receive Date: 20250613
  Receipt Date: 20250613
  Transmission Date: 20250717
  Serious: No
  Sender: MISSION PHARMACAL COMPANY
  Company Number: US-Mission Pharmacal Company-2178647

PATIENT
  Age: 64 Year
  Sex: Female

DRUGS (12)
  1. THIOLA EC [Suspect]
     Active Substance: TIOPRONIN
     Indication: Amino acid metabolism disorder
     Dates: start: 20250502
  2. ALENDRONATE [Concomitant]
     Active Substance: ALENDRONATE SODIUM
  3. TAMSULOSIN [Concomitant]
     Active Substance: TAMSULOSIN
  4. OXYCODONE AND ACETAMINOPHEN [Concomitant]
     Active Substance: ACETAMINOPHEN\OXYCODONE HYDROCHLORIDE
  5. ONDANSETRON [Concomitant]
     Active Substance: ONDANSETRON
  6. METOPROLOL TARTRATE [Concomitant]
     Active Substance: METOPROLOL TARTRATE
  7. LOSARTAN [Concomitant]
     Active Substance: LOSARTAN
  8. KETOROLAC [Concomitant]
     Active Substance: KETOROLAC TROMETHAMINE
  9. CEPHALEXIN [Concomitant]
     Active Substance: CEPHALEXIN
  10. ATORVASTATIN [Concomitant]
     Active Substance: ATORVASTATIN
  11. ASPIRIN [Concomitant]
     Active Substance: ASPIRIN
  12. AMLODIPINE [Concomitant]
     Active Substance: AMLODIPINE BESYLATE

REACTIONS (3)
  - Fatigue [Unknown]
  - Glomerular filtration rate decreased [Unknown]
  - Flank pain [Unknown]
